FAERS Safety Report 22281084 (Version 6)
Quarter: 2023Q4

REPORT INFORMATION
  Report Type: Report from Study
  Country: UA (occurrence: UA)
  Receive Date: 20230504
  Receipt Date: 20231106
  Transmission Date: 20240109
  Serious: Yes (Hospitalization)
  Sender: FDA-Public Use
  Company Number: UA-AMGEN-UKRCT2023072691

PATIENT
  Age: 14 Year
  Sex: Female
  Weight: 36 kg

DRUGS (8)
  1. DENOSUMAB [Suspect]
     Active Substance: DENOSUMAB
     Indication: Osteoporosis
     Dosage: 0.59 MILLILITER
     Route: 058
     Dates: start: 20201110
  2. FOLIC ACID [Concomitant]
     Active Substance: FOLIC ACID
     Dosage: 10 MILLIGRAM
     Route: 048
     Dates: start: 20200111, end: 20230815
  3. METHOTREXATE [Concomitant]
     Active Substance: METHOTREXATE
     Dosage: 15 MILLIGRAM
     Route: 048
     Dates: start: 20200111, end: 20230814
  4. CHOLECALCIFEROL [Concomitant]
     Active Substance: CHOLECALCIFEROL
     Dosage: UNK
     Route: 065
     Dates: start: 20211101, end: 20221202
  5. SOMATROPIN [Concomitant]
     Active Substance: SOMATROPIN
     Dosage: 1.2 MILLIGRAM
     Route: 058
     Dates: start: 20221219
  6. MEDROL [Concomitant]
     Active Substance: METHYLPREDNISOLONE
     Dosage: UNK
     Route: 065
     Dates: start: 20190913, end: 20230113
  7. Calcium d3 nycomed forte [Concomitant]
     Dosage: UNK
     Dates: start: 20201110
  8. OLIDETRIM [Concomitant]
     Dosage: UNK
     Dates: start: 20220116, end: 20230601

REACTIONS (1)
  - Ureterolithiasis [Recovered/Resolved]

NARRATIVE: CASE EVENT DATE: 20230423
